FAERS Safety Report 21783899 (Version 1)
Quarter: 2022Q4

REPORT INFORMATION
  Report Type: Spontaneous
  Country: CL (occurrence: CL)
  Receive Date: 20221227
  Receipt Date: 20221227
  Transmission Date: 20230113
  Serious: Yes (Death, Other)
  Sender: FDA-Public Use
  Company Number: CL-AMGEN-CHLSP2022221014

PATIENT

DRUGS (10)
  1. FILGRASTIM [Suspect]
     Active Substance: FILGRASTIM
     Indication: Haematopoietic stem cell mobilisation
     Dosage: 10 MICROGRAM/KILOGRAM, QD
     Route: 065
  2. MELPHALAN [Concomitant]
     Active Substance: MELPHALAN
     Dosage: 200 MILLIGRAM/SQ. METER
  3. LENALIDOMIDE [Concomitant]
     Active Substance: LENALIDOMIDE
  4. BORTEZOMIB [Concomitant]
     Active Substance: BORTEZOMIB
  5. THALIDOMIDE [Concomitant]
     Active Substance: THALIDOMIDE
  6. DEXAMETHASONE [Concomitant]
     Active Substance: DEXAMETHASONE
  7. CISPLATIN [Concomitant]
     Active Substance: CISPLATIN
  8. CYCLOPHOSPHAMIDE [Concomitant]
     Active Substance: CYCLOPHOSPHAMIDE
  9. DOXORUBICIN [Concomitant]
     Active Substance: DOXORUBICIN
  10. ETOPOSIDE [Concomitant]
     Active Substance: ETOPOSIDE

REACTIONS (16)
  - Death [Fatal]
  - Distributive shock [Unknown]
  - Plasma cell myeloma [Unknown]
  - Febrile neutropenia [Unknown]
  - Delayed engraftment [Unknown]
  - Pseudomonas infection [Unknown]
  - Engraftment syndrome [Unknown]
  - Delirium [Unknown]
  - Device related sepsis [Unknown]
  - Cytokine release syndrome [Unknown]
  - Therapy partial responder [Unknown]
  - Minimal residual disease [Unknown]
  - Febrile nonhaemolytic transfusion reaction [Unknown]
  - Diarrhoea [Unknown]
  - Haematuria [Unknown]
  - Anxiety disorder [Unknown]
